FAERS Safety Report 23449123 (Version 1)
Quarter: 2024Q1

REPORT INFORMATION
  Report Type: Spontaneous
  Country: US (occurrence: US)
  Receive Date: 20240128
  Receipt Date: 20240128
  Transmission Date: 20240410
  Serious: No
  Sender: FDA-Public Use
  Company Number: US-AMGEN-USASP2024012781

PATIENT
  Age: 77 Year
  Sex: Female

DRUGS (1)
  1. PROLIA [Suspect]
     Active Substance: DENOSUMAB
     Indication: Osteoporosis
     Dosage: UNK, Q6MO
     Route: 065

REACTIONS (10)
  - Dental prosthesis placement [Unknown]
  - Gingival pain [Recovering/Resolving]
  - Gingival bleeding [Recovering/Resolving]
  - Oral disorder [Not Recovered/Not Resolved]
  - Gingival erythema [Recovering/Resolving]
  - Tooth fracture [Unknown]
  - Tooth extraction [Unknown]
  - Fall [Unknown]
  - Gingival swelling [Recovering/Resolving]
  - Jaw clicking [Recovering/Resolving]

NARRATIVE: CASE EVENT DATE: 20230401
